FAERS Safety Report 22166064 (Version 1)
Quarter: 2023Q1

REPORT INFORMATION
  Report Type: Spontaneous
  Country: US (occurrence: None)
  Receive Date: 20230331
  Receipt Date: 20230331
  Transmission Date: 20230418
  Serious: Yes (Life-Threatening, Disabling)
  Sender: FDA-Public Use
  Company Number: None

PATIENT
  Age: 25 Year
  Sex: Female
  Weight: 51.75 kg

DRUGS (5)
  1. GABAPENTIN [Suspect]
     Active Substance: GABAPENTIN
     Indication: Anxiety disorder
     Dates: end: 20230329
  2. GABAPENTIN [Suspect]
     Active Substance: GABAPENTIN
     Indication: Pain
  3. Estarylla (continuous dosing) [Concomitant]
  4. Ativan (occasionally) [Concomitant]
  5. right sided cochlear implant [Concomitant]

REACTIONS (2)
  - Suicidal ideation [None]
  - Head discomfort [None]

NARRATIVE: CASE EVENT DATE: 20230321
